FAERS Safety Report 12147412 (Version 1)
Quarter: 2016Q1

REPORT INFORMATION
  Report Type: Spontaneous
  Country: US (occurrence: US)
  Receive Date: 20160304
  Receipt Date: 20160304
  Transmission Date: 20160526
  Serious: No
  Sender: FDA-Public Use
  Company Number: US-TAKEDA-2015TUS006168

PATIENT
  Age: 67 Year
  Sex: Female
  Weight: 54.42 kg

DRUGS (12)
  1. DEXILANT [Suspect]
     Active Substance: DEXLANSOPRAZOLE
     Indication: GASTRITIS
     Dosage: 60 MG, QD
     Route: 048
     Dates: start: 201504
  2. DEXILANT [Suspect]
     Active Substance: DEXLANSOPRAZOLE
     Indication: HIATUS HERNIA
  3. LEVOTHYROXINE. [Concomitant]
     Active Substance: LEVOTHYROXINE
     Indication: THYROID DISORDER
     Dosage: 75 ?G, QD
     Route: 048
     Dates: start: 1985
  4. DICYCLOMINE                        /00068601/ [Concomitant]
     Active Substance: DICYCLOMINE HYDROCHLORIDE
     Indication: IRRITABLE BOWEL SYNDROME
     Dosage: 10 MG -1 TAB UP TO THREE A DAY
     Route: 048
     Dates: start: 1995
  5. AMLODIPINE [Concomitant]
     Active Substance: AMLODIPINE BESYLATE
     Indication: HYPERTENSION
     Dosage: 10 MG 1/2 TABLET DAILY
     Route: 048
     Dates: start: 201406
  6. CLOPIDOGREL [Concomitant]
     Active Substance: CLOPIDOGREL BISULFATE
     Indication: CARDIAC DISORDER
     Dosage: 75 MG, QD
     Dates: start: 201404
  7. NITRO                              /00003201/ [Concomitant]
     Indication: CARDIAC DISORDER
     Dosage: UNK AS NEEDED FOR HEART ISSUES
     Route: 048
  8. RANITIDINE [Concomitant]
     Active Substance: RANITIDINE\RANITIDINE HYDROCHLORIDE
     Indication: CHEST DISCOMFORT
     Dosage: 150 MG, QD
     Route: 048
     Dates: start: 2014
  9. DIAZEPAM. [Concomitant]
     Active Substance: DIAZEPAM
     Indication: ANXIETY
     Dosage: 10 MG -1 TO 3 TIMES A DAY AS NEEDED
     Route: 048
  10. GAS-X                              /01765401/ [Concomitant]
     Indication: FLATULENCE
     Dosage: UNK, QD
     Route: 048
     Dates: start: 2014
  11. PHILLIPS COLON HEALTH [Concomitant]
     Indication: ABDOMINAL PAIN UPPER
     Dosage: UNK, QD
     Route: 048
     Dates: start: 201404
  12. AMLODIPINE [Concomitant]
     Active Substance: AMLODIPINE BESYLATE
     Indication: ANGINA PECTORIS

REACTIONS (7)
  - Panic attack [Unknown]
  - Heart rate increased [Recovered/Resolved]
  - Abdominal distension [Not Recovered/Not Resolved]
  - Insomnia [Unknown]
  - Flatulence [Not Recovered/Not Resolved]
  - Feeling jittery [Unknown]
  - Abdominal pain upper [Not Recovered/Not Resolved]

NARRATIVE: CASE EVENT DATE: 20150403
